FAERS Safety Report 6749315-2 (Version None)
Quarter: 2010Q2

REPORT INFORMATION
  Report Type: 
  Country: None (occurrence: None)
  Receive Date: 20100601
  Receipt Date: 20100519
  Transmission Date: 20101027
  Serious: Yes (Hospitalization)
  Sender: FDA-Public Use
  Company Number: JP-AMGEN-QUU414925

PATIENT
  Age: 38 Year
  Sex: Female

DRUGS (5)
  1. ENBREL [Suspect]
     Indication: RHEUMATOID ARTHRITIS
     Route: 058
     Dates: start: 20080509, end: 20100512
  2. PROGRAF [Suspect]
     Route: 048
     Dates: start: 20081008, end: 20100512
  3. DEPAS [Concomitant]
     Route: 048
     Dates: end: 20100512
  4. PREDNISOLONE [Concomitant]
     Route: 048
  5. ROCALTROL [Concomitant]
     Route: 048
     Dates: end: 20100512

REACTIONS (1)
  - PULMONARY ALVEOLAR HAEMORRHAGE [None]
